FAERS Safety Report 25721468 (Version 1)
Quarter: 2025Q3

REPORT INFORMATION
  Report Type: Spontaneous
  Country: IN (occurrence: IN)
  Receive Date: 20250825
  Receipt Date: 20250825
  Transmission Date: 20251021
  Serious: Yes (Hospitalization, Other)
  Sender: ZYDUS PHARM
  Company Number: IN-ZYDUS-IN-ZYDUS-127430

PATIENT

DRUGS (1)
  1. AMLODIPINE [Suspect]
     Active Substance: AMLODIPINE BESYLATE
     Indication: Product used for unknown indication
     Route: 048
     Dates: start: 20230316

REACTIONS (8)
  - Acute kidney injury [Unknown]
  - Capillary leak syndrome [Unknown]
  - Non-cardiogenic pulmonary oedema [Unknown]
  - Oliguria [Unknown]
  - Pleural effusion [Unknown]
  - Hypotension [Unknown]
  - Vomiting [Unknown]
  - Intentional overdose [Unknown]
